FAERS Safety Report 6384526 (Version 21)
Quarter: 2014Q2

REPORT INFORMATION
  Report Type: Spontaneous
  Country: US (occurrence: US)
  Receive Date: 20070816
  Receipt Date: 20140429
  Transmission Date: 20141212
  Serious: Yes (Death, Hospitalization, Other)
  Sender: FDA-Public Use
  Company Number: PHEH2007US10963

PATIENT
  Age: 75 Year
  Sex: Male

DRUGS (28)
  1. ZOMETA [Suspect]
     Indication: HORMONE-REFRACTORY PROSTATE CANCER
     Route: 041
     Dates: end: 20060727
  2. DECADRON//DEXAMETHASONE [Suspect]
  3. CARDIZEM [Concomitant]
  4. METFORMIN [Concomitant]
  5. CANDIDA-LOKALICID [Concomitant]
  6. TAXOTERE [Concomitant]
  7. PERIDEX [Concomitant]
  8. AUGMENTIN [Concomitant]
  9. CHEMOTHERAPEUTICS NOS [Concomitant]
  10. RADIATION THERAPY [Concomitant]
  11. DEXAMETHASONE [Concomitant]
  12. LOVENOX [Concomitant]
  13. CHLORHEXIDINE [Concomitant]
  14. NOVOLIN R [Concomitant]
  15. NOVOLOG [Concomitant]
  16. LOPRESSOR [Concomitant]
  17. COZAAR [Concomitant]
  18. LISINOPRIL [Concomitant]
  19. REGLAN                                  /USA/ [Concomitant]
  20. FENTANYL [Concomitant]
  21. LORAZEPAM [Concomitant]
  22. SUCRALFATE [Concomitant]
  23. IRON [Concomitant]
  24. BETAMETHASONE [Concomitant]
  25. OMEPRAZOLE [Concomitant]
  26. TRAZODONE [Concomitant]
     Indication: INSOMNIA
  27. PLAQUENIL [Concomitant]
  28. SLOW-K [Concomitant]

REACTIONS (102)
  - Prostate cancer [Fatal]
  - Squamous cell carcinoma [Unknown]
  - Chronic gastritis [Unknown]
  - Osteonecrosis of jaw [Unknown]
  - Emotional distress [Unknown]
  - Pain [Unknown]
  - Anhedonia [Unknown]
  - Infection [Unknown]
  - Deformity [Unknown]
  - Anxiety [Unknown]
  - Disability [Unknown]
  - Bone loss [Unknown]
  - Stomatitis [Unknown]
  - Overdose [Unknown]
  - Dermatitis contact [Unknown]
  - Tooth abscess [Unknown]
  - Tooth fracture [Unknown]
  - Mastication disorder [Unknown]
  - Gingival swelling [Unknown]
  - Osteoarthritis [Unknown]
  - Gastrointestinal haemorrhage [Unknown]
  - Syncope [Unknown]
  - Palpitations [Unknown]
  - Renal cyst [Unknown]
  - Primary sequestrum [Unknown]
  - Pulmonary embolism [Unknown]
  - Depression [Unknown]
  - Walking aid user [Unknown]
  - Diverticulum [Unknown]
  - Cholelithiasis [Unknown]
  - Deep vein thrombosis [Unknown]
  - Gastric ulcer [Unknown]
  - Myocardial infarction [Unknown]
  - Anaemia [Unknown]
  - Sinus arrhythmia [Unknown]
  - Serratia infection [Unknown]
  - Duodenal fistula [Unknown]
  - Sinus bradycardia [Unknown]
  - Constipation [Unknown]
  - Cardiac failure congestive [Unknown]
  - Hyponatraemia [Unknown]
  - Decubitus ulcer [Unknown]
  - Spinal cord compression [Unknown]
  - Pneumonia [Unknown]
  - Discomfort [Unknown]
  - Apnoea [Unknown]
  - Pulse absent [Unknown]
  - Respiratory arrest [Unknown]
  - Dehydration [Unknown]
  - Nausea [Unknown]
  - Fatigue [Unknown]
  - Neuralgia [Unknown]
  - Mental status changes [Recovering/Resolving]
  - Asthenia [Unknown]
  - Hypoglycaemia [Unknown]
  - Gynaecomastia [Unknown]
  - Neuropathy peripheral [Unknown]
  - Chest pain [Unknown]
  - Back pain [Unknown]
  - Fall [Unknown]
  - Atelectasis [Unknown]
  - Malaise [Unknown]
  - Cardiomegaly [Unknown]
  - Second primary malignancy [Unknown]
  - Inguinal hernia [Unknown]
  - Nephrolithiasis [Unknown]
  - Osteolysis [Unknown]
  - Metastases to spine [Unknown]
  - Oral candidiasis [Unknown]
  - Metastases to bone [Unknown]
  - Malignant neoplasm progression [Unknown]
  - Humerus fracture [Unknown]
  - Osteosclerosis [Unknown]
  - Oedema peripheral [Unknown]
  - Intervertebral disc protrusion [Unknown]
  - Vertebral foraminal stenosis [Unknown]
  - Spinal column stenosis [Unknown]
  - Intervertebral disc degeneration [Unknown]
  - Urinary tract infection [Unknown]
  - Cataract [Unknown]
  - Tooth infection [Unknown]
  - Dizziness [Unknown]
  - Confusional state [Unknown]
  - Exposed bone in jaw [Unknown]
  - Toothache [Unknown]
  - Dental caries [Unknown]
  - Exostosis of jaw [Unknown]
  - Nasopharyngitis [Unknown]
  - Eczema [Unknown]
  - Eosinophilia [Unknown]
  - Skin lesion [Unknown]
  - Aortic arteriosclerosis [Unknown]
  - Pulmonary fibrosis [Unknown]
  - Bladder dilatation [Unknown]
  - Osteopenia [Unknown]
  - Haemorrhage [Unknown]
  - Vertebral column mass [Unknown]
  - Candida infection [Recovering/Resolving]
  - Arthralgia [Unknown]
  - Musculoskeletal pain [Unknown]
  - Pain in extremity [Unknown]
  - Weight decreased [Unknown]
